FAERS Safety Report 16235982 (Version 1)
Quarter: 2019Q2

REPORT INFORMATION
  Report Type: Spontaneous
  Country: DE (occurrence: DE)
  Receive Date: 20190425
  Receipt Date: 20190425
  Transmission Date: 20190711
  Serious: Yes (Congenital Anomaly, Other)
  Sender: FDA-Public Use
  Company Number: DE-AUROBINDO-AUR-APL-2019-022105

PATIENT

DRUGS (2)
  1. OLANZAPINE. [Suspect]
     Active Substance: OLANZAPINE
     Indication: DEPRESSION
     Dosage: 5 MILLIGRAM, ONCE A DAY,5 [MG/D ], 0. - 8. GESTATIONAL WEEK
     Route: 064
  2. DULOXETINE. [Suspect]
     Active Substance: DULOXETINE
     Indication: DEPRESSION
     Dosage: 30 MILLIGRAM, ONCE A DAY,30 [MG/D ]
     Route: 064

REACTIONS (3)
  - Polydactyly [Not Recovered/Not Resolved]
  - Foetal exposure during pregnancy [Unknown]
  - Limb reduction defect [Not Recovered/Not Resolved]

NARRATIVE: CASE EVENT DATE: 20181107
